FAERS Safety Report 7584033-2 (Version None)
Quarter: 2011Q2

REPORT INFORMATION
  Report Type: 
  Country: None (occurrence: None)
  Receive Date: 20110630
  Receipt Date: 20110621
  Transmission Date: 20111010
  Serious: Yes (Death, Life-Threatening)
  Sender: FDA-Public Use
  Company Number: GB-JNJFOC-20110610297

PATIENT
  Sex: Female

DRUGS (3)
  1. METHOTREXATE [Concomitant]
     Dates: end: 20090115
  2. METHOTREXATE [Concomitant]
     Dates: start: 20021114, end: 20061115
  3. INFLIXIMAB, RECOMBINANT [Suspect]
     Indication: RHEUMATOID ARTHRITIS
     Route: 042
     Dates: start: 20021114, end: 20060831

REACTIONS (2)
  - PULMONARY EMBOLISM [None]
  - MALIGNANT PERITONEAL NEOPLASM [None]
